FAERS Safety Report 4846635-3 (Version None)
Quarter: 2005Q4

REPORT INFORMATION
  Report Type: 
  Country: None (occurrence: None)
  Receive Date: 20051202
  Receipt Date: 20051128
  Transmission Date: 20060501
  Serious: Yes (Death)
  Sender: FDA-Public Use
  Company Number: US016426

PATIENT
  Age: 65 Year
  Sex: 0

DRUGS (1)
  1. TRISENOX [Suspect]
     Indication: MULTIPLE MYELOMA
     Dates: start: 20050501

REACTIONS (3)
  - MULTI-ORGAN FAILURE [None]
  - PNEUMONIA [None]
  - SEPSIS [None]
